FAERS Safety Report 8513694-6 (Version None)
Quarter: 2012Q3

REPORT INFORMATION
  Report Type: 
  Country: None (occurrence: None)
  Receive Date: 20120717
  Receipt Date: 20120704
  Transmission Date: 20120928
  Serious: Yes (Other)
  Sender: FDA-Public Use
  Company Number: NG-RANBAXY-2012RR-57845

PATIENT
  Age: 50 Year
  Sex: Female

DRUGS (4)
  1. LISINOPRIL [Suspect]
     Indication: HYPERTENSION
     Route: 065
  2. DIOVAN [Concomitant]
     Indication: HYPERTENSION
     Dosage: 80 MG/DAY
     Route: 065
  3. ATENOLOL [Suspect]
     Indication: HYPERTENSION
     Dosage: 50 MG/DAY
     Route: 065
  4. AMLODIPINE [Concomitant]
     Indication: HYPERTENSION
     Route: 065

REACTIONS (3)
  - SEXUAL DYSFUNCTION [None]
  - COUGH [None]
  - INSOMNIA [None]
